FAERS Safety Report 25052437 (Version 1)
Quarter: 2025Q1

REPORT INFORMATION
  Report Type: Spontaneous
  Country: US (occurrence: US)
  Receive Date: 20250307
  Receipt Date: 20250307
  Transmission Date: 20250409
  Serious: No
  Sender: GALDERMA
  Company Number: US-GALDERMA-US2024018766

PATIENT

DRUGS (6)
  1. PROACTIV MD ADAPALENE ACNE TREATMENT [Suspect]
     Active Substance: ADAPALENE
     Indication: Product used for unknown indication
     Route: 061
  2. Proactiv MD Ultra Gentle Cleanser [Concomitant]
     Indication: Product used for unknown indication
     Route: 061
  3. COSMETICS [Concomitant]
     Active Substance: COSMETICS
     Indication: Product used for unknown indication
     Route: 061
  4. Proactiv Smooth + Bright Resurfacing Mask [Concomitant]
     Indication: Product used for unknown indication
     Route: 061
  5. Proactiv Zits Happen Patches [Concomitant]
     Indication: Product used for unknown indication
     Route: 061
  6. PROACTIV BLACKHEAD DISSOLVING [Concomitant]
     Active Substance: SALICYLIC ACID
     Indication: Product used for unknown indication
     Route: 061

REACTIONS (4)
  - Eye swelling [Unknown]
  - Periorbital swelling [Unknown]
  - Pruritus [Unknown]
  - Rash [Unknown]
